FAERS Safety Report 24847816 (Version 6)
Quarter: 2025Q2

REPORT INFORMATION
  Report Type: Spontaneous
  Country: US (occurrence: US)
  Receive Date: 20250116
  Receipt Date: 20250501
  Transmission Date: 20250717
  Serious: No
  Sender: NOVARTIS
  Company Number: US-002147023-NVSC2025US005352

PATIENT
  Age: 44 Year
  Sex: Female

DRUGS (1)
  1. KESIMPTA [Suspect]
     Active Substance: OFATUMUMAB
     Indication: Relapsing-remitting multiple sclerosis
     Dosage: 20 MG, QMO (ONCE A MONTH)
     Route: 058
     Dates: start: 202501

REACTIONS (10)
  - Abdominal discomfort [Unknown]
  - Pain [Unknown]
  - Tremor [Unknown]
  - Illness [Unknown]
  - Feeling abnormal [Unknown]
  - Panic reaction [Unknown]
  - Frustration tolerance decreased [Unknown]
  - Anxiety [Unknown]
  - Influenza like illness [Unknown]
  - Headache [Unknown]

NARRATIVE: CASE EVENT DATE: 20250103
